FAERS Safety Report 7551090-9 (Version None)
Quarter: 2011Q2

REPORT INFORMATION
  Report Type: 
  Country: None (occurrence: None)
  Receive Date: 20110616
  Receipt Date: 20110613
  Transmission Date: 20111010
  Serious: Yes (Hospitalization)
  Sender: FDA-Public Use
  Company Number: US-BRISTOL-MYERS SQUIBB COMPANY-14739080

PATIENT
  Age: 40 Year
  Sex: Female

DRUGS (9)
  1. DIGOXIN [Concomitant]
     Dates: start: 20080902
  2. WARFARIN SODIUM [Suspect]
     Indication: THROMBOSIS PROPHYLAXIS
     Route: 048
     Dates: start: 20090618, end: 20090801
  3. TRIAMTERENE [Concomitant]
     Dates: start: 20080902, end: 20090802
  4. HYDROCHLOROTHIAZIDE [Concomitant]
     Dates: start: 20080902, end: 20090802
  5. ASPIRIN [Concomitant]
     Dates: start: 20080920, end: 20090802
  6. LASIX [Concomitant]
     Dates: start: 20090505
  7. PLACEBO [Suspect]
     Indication: THROMBOSIS PROPHYLAXIS
     Route: 048
     Dates: start: 20090618, end: 20090801
  8. LISINOPRIL [Concomitant]
     Dates: start: 20080902
  9. METOPROLOL TARTRATE [Concomitant]
     Dates: start: 20081209

REACTIONS (4)
  - LEIOMYOMA [None]
  - NON-CARDIAC CHEST PAIN [None]
  - PNEUMONIA [None]
  - HAEMOPTYSIS [None]
